FAERS Safety Report 7135847-4 (Version None)
Quarter: 2010Q4

REPORT INFORMATION
  Report Type: 
  Country: None (occurrence: None)
  Receive Date: 20101203
  Receipt Date: 20101124
  Transmission Date: 20110411
  Serious: Yes (Hospitalization, Other)
  Sender: FDA-Public Use
  Company Number: US-JNJFOC-20100700273

PATIENT
  Sex: Female
  Weight: 88 kg

DRUGS (2)
  1. SIMPONI [Suspect]
     Indication: RHEUMATOID ARTHRITIS
     Route: 058
  2. CLINDAMYCIN [Concomitant]
     Indication: LOCALISED INFECTION

REACTIONS (11)
  - DRUG INEFFECTIVE [None]
  - DRY MOUTH [None]
  - FOOT DEFORMITY [None]
  - JOINT SWELLING [None]
  - LIP BLISTER [None]
  - LOCALISED INFECTION [None]
  - PAIN IN EXTREMITY [None]
  - POLLAKIURIA [None]
  - RHEUMATOID ARTHRITIS [None]
  - SKIN ULCER [None]
  - SWELLING FACE [None]
